FAERS Safety Report 5468915-3 (Version None)
Quarter: 2007Q3

REPORT INFORMATION
  Report Type: 
  Country: None (occurrence: None)
  Receive Date: 20070926
  Receipt Date: 20070924
  Transmission Date: 20080115
  Serious: Yes (Death)
  Sender: FDA-Public Use
  Company Number: US-SHR-US-2007-002078

PATIENT
  Age: 15 Year
  Sex: Male
  Weight: 35 kg

DRUGS (66)
  1. MAGNEVIST [Suspect]
     Dosage: 10 ML, 1 DOSE
     Dates: start: 20040522, end: 20040522
  2. OMNISCAN [Suspect]
     Dosage: UNK, 1 DOSE
     Dates: start: 20030323, end: 20030323
  3. OMNISCAN [Suspect]
     Dosage: 8 ML, 1 DOSE
     Dates: start: 20030730, end: 20030730
  4. OMNISCAN [Suspect]
     Dosage: 8.8 ML, 1 DOSE
     Dates: start: 20030825, end: 20030825
  5. OMNISCAN [Suspect]
     Dosage: UNK, 1 DOSE
     Dates: start: 20040802, end: 20040802
  6. OMNISCAN [Suspect]
     Dosage: UNK, 1 DOSE
     Dates: start: 20041020, end: 20041020
  7. OMNISCAN [Suspect]
     Dosage: UNK, 1 DOSE
     Dates: start: 20030918, end: 20030918
  8. OMNISCAN [Suspect]
     Dosage: 8 ML, 1 DOSE
     Dates: start: 20040219, end: 20040219
  9. OPTIMARK [Suspect]
     Dosage: 4 ML, 1 DOSE
     Dates: start: 20040514, end: 20040514
  10. PROHANCE [Suspect]
     Dosage: UNK, 1 DOSE
  11. MULTIHANCE [Suspect]
     Dosage: UNK, 1 DOSE
  12. DIGOXIN [Concomitant]
     Dosage: 2 ML, EVERY 2D
  13. CAPTOPRIL [Concomitant]
     Dosage: 12.5 MG, 2X/DAY
  14. ROCALTROL [Concomitant]
     Dosage: .25 A?G, EVERY 3D
  15. BICITRA [Concomitant]
     Dosage: 15 ML, 2X/DAY
  16. BICITRA [Concomitant]
     Dates: start: 20030825
  17. BICITRA [Concomitant]
     Dates: end: 20030825
  18. BICITRA [Concomitant]
  19. BICITRA [Concomitant]
     Dates: start: 20030825
  20. BICITRA [Concomitant]
     Dates: start: 20030825
  21. BICITRA [Concomitant]
     Dates: start: 20030825
  22. TUMS [Concomitant]
     Dosage: 2 TAB(S), 2X/DAY
  23. MDP-SQUIBB [Concomitant]
     Dosage: 10.4 MCI, 1 DOSE
     Route: 042
     Dates: start: 20010605, end: 20010605
  24. MDP-SQUIBB [Concomitant]
     Dosage: 8.8 MCI, 1 DOSE
     Route: 042
     Dates: start: 20010824, end: 20010824
  25. MDP-SQUIBB [Concomitant]
     Dates: start: 20030324, end: 20030324
  26. VINCRISTINE [Concomitant]
     Dates: start: 20010101
  27. ADRIAMYCIN PFS [Concomitant]
     Dates: start: 20010101
  28. CYTOXAN [Concomitant]
     Dates: start: 20010101
  29. NEUPOGEN [Concomitant]
     Dosage: 200 A?G, 1X/DAY
     Route: 058
     Dates: start: 20010607
  30. DEXAMETHASONE 0.5MG TAB [Concomitant]
     Dosage: 2 MG, 2X/DAY
     Route: 048
     Dates: start: 20010607
  31. RANITIDINE [Concomitant]
     Dosage: 75 MG, 2X/DAY
     Route: 048
     Dates: start: 20010607
  32. METOCLOPRAMIDE [Concomitant]
  33. DIPHENHYDRAMINE HCL [Concomitant]
  34. ONDANSETRON [Concomitant]
  35. AMLODIPINE [Concomitant]
  36. EPOETIN ALFA [Concomitant]
     Dosage: 2000 UNITS IV OR SC
     Dates: start: 20010603
  37. EPOETIN ALFA [Concomitant]
     Dosage: 7000 UNITS
     Dates: start: 20040522, end: 20040523
  38. ALLOPURINOL [Concomitant]
     Dosage: 50 MG, 2X/DAY
     Route: 048
     Dates: start: 20010531
  39. CALCIUM CARBONATE [Concomitant]
     Dosage: 400 MG, UNK
     Route: 048
     Dates: start: 20010530
  40. FERROUS SULFATE TAB [Concomitant]
     Dosage: 300 MG, UNK
     Route: 048
     Dates: start: 20010530
  41. MESNA [Concomitant]
     Dosage: 1000 MG, UNK
  42. LASIX [Concomitant]
     Route: 042
     Dates: start: 20010607, end: 20010607
  43. TISSUE PLASMINOGEN ACTIVATOR, RECOMBINATIVE [Concomitant]
     Dosage: 1 MG, 1 DOSE
     Route: 042
     Dates: start: 20010628, end: 20010628
  44. IFOSFAMIDE [Concomitant]
     Dates: start: 20010625, end: 20010627
  45. VP-16 [Concomitant]
     Dates: start: 20010625, end: 20010627
  46. FOLIC ACID [Concomitant]
  47. VITAMIN B COMPLEX CAP [Concomitant]
     Dates: start: 20040421
  48. BACTRIM [Concomitant]
  49. TYLENOL (CAPLET) [Concomitant]
  50. NEPHRO-VITE RX [Concomitant]
  51. SODIUM BICARBONATE [Concomitant]
  52. NEURONTIN [Concomitant]
     Dosage: 50 MG, 1X/DAY
     Route: 048
     Dates: start: 20030301
  53. NEURONTIN [Concomitant]
     Dosage: 100 MG, 1X/DAY
     Route: 048
     Dates: start: 20030401
  54. PHOSLO [Concomitant]
  55. TOPAMAX [Concomitant]
  56. CARBATROL [Concomitant]
     Dosage: 100 MG, 2X/DAY
     Route: 048
     Dates: start: 20040612
  57. VICODIN [Concomitant]
  58. AMITRIPTYLINE HCL [Concomitant]
  59. DEPAKOTE [Concomitant]
     Dates: start: 20040601
  60. RENAGEL [Concomitant]
     Dosage: 2 TAB(S), 3X/DAY
     Dates: start: 20040601
  61. RED BLOOD CELLS [Concomitant]
     Dosage: 300 ML, 2 DOSES
     Dates: start: 20040923, end: 20040923
  62. RED BLOOD CELLS [Concomitant]
     Dosage: 300 ML, 1 DOSE
     Dates: start: 20041223, end: 20041223
  63. RED BLOOD CELLS [Concomitant]
     Dosage: 300 ML, 2 DOSES
     Dates: start: 20041224, end: 20041224
  64. RED BLOOD CELLS [Concomitant]
     Dosage: 300 ML, 1 DOSE
     Dates: start: 20020306, end: 20020306
  65. REGRANEX ^ORTHO-MCNEIL^ [Concomitant]
     Dates: start: 20041001
  66. TPN [Concomitant]
     Dates: start: 20040901

REACTIONS (2)
  - CARDIAC ARREST [None]
  - NEPHROGENIC SYSTEMIC FIBROSIS [None]
